FAERS Safety Report 9180547 (Version 13)
Quarter: 2014Q1

REPORT INFORMATION
  Report Type: Spontaneous
  Country: US (occurrence: US)
  Receive Date: 20130322
  Receipt Date: 20140213
  Transmission Date: 20141002
  Serious: No
  Sender: FDA-Public Use
  Company Number: US-009507513-1303USA010278

PATIENT
  Age: 29 Year
  Sex: Female
  Weight: 112.2 kg

DRUGS (3)
  1. IMPLANON [Suspect]
     Indication: CONTRACEPTION
     Dosage: 1 ROD, UNK
     Route: 059
     Dates: start: 20100430
  2. NAPROXEN [Concomitant]
  3. LEVOTHYROXINE SODIUM [Concomitant]
     Route: 048

REACTIONS (4)
  - Device dislocation [Unknown]
  - Device deployment issue [Unknown]
  - Incorrect drug administration duration [Unknown]
  - Medical device complication [Unknown]
